FAERS Safety Report 6035082-7 (Version None)
Quarter: 2009Q1

REPORT INFORMATION
  Report Type: 
  Country: None (occurrence: None)
  Receive Date: 20090112
  Receipt Date: 20090105
  Transmission Date: 20090719
  Serious: Yes (Hospitalization)
  Sender: FDA-Public Use
  Company Number: TR-ROXANE LABORATORIES, INC.-2009-RO-00011RO

PATIENT
  Age: 40 Year
  Sex: Male

DRUGS (3)
  1. CODEINE SUL TAB [Suspect]
     Indication: COUGH
  2. OLANZAPINE [Concomitant]
     Indication: MANIA
     Dosage: 10MG
  3. VALPROATE SODIUM [Concomitant]
     Indication: MANIA
     Dosage: 1000MG

REACTIONS (3)
  - BIPOLAR I DISORDER [None]
  - DRUG ABUSE [None]
  - MANIA [None]
